FAERS Safety Report 5814432-8 (Version None)
Quarter: 2008Q3

REPORT INFORMATION
  Report Type: 
  Country: None (occurrence: None)
  Receive Date: 20080718
  Receipt Date: 20080705
  Transmission Date: 20090109
  Serious: Yes (Hospitalization, Other)
  Sender: FDA-Public Use
  Company Number: PHHY2008BR13590

PATIENT
  Age: 57 Year
  Sex: Female
  Weight: 105 kg

DRUGS (7)
  1. DIOVAN [Suspect]
     Indication: HYPERTENSION
     Dosage: 320 MG, QD
     Route: 048
     Dates: start: 20050101
  2. SIMVASTATIN [Concomitant]
     Indication: DYSLIPIDAEMIA
     Dosage: 20 MG/DAY
     Dates: start: 20071201
  3. GINKGO BILOBA [Concomitant]
     Dosage: 80 MG, BID
     Route: 048
     Dates: start: 20050101
  4. VACCINES [Concomitant]
     Indication: HYPERSENSITIVITY
     Dosage: ONCE EVERY 15 DAYS
     Route: 058
     Dates: start: 20070701
  5. BUDESONIDE [Concomitant]
     Indication: DYSPNOEA
     Dosage: UNK
     Route: 045
     Dates: start: 20070701
  6. PRIVINA [Concomitant]
     Indication: DYSPNOEA
     Dosage: UNK
     Route: 045
  7. RIVOTRIL [Concomitant]
     Dosage: 2.5 MG, 6 DROPS AT EVENING
     Dates: start: 20080703

REACTIONS (9)
  - BLOOD PRESSURE INADEQUATELY CONTROLLED [None]
  - CHILLS [None]
  - DEFAECATION URGENCY [None]
  - DIZZINESS [None]
  - HEADACHE [None]
  - MALAISE [None]
  - MICTURITION URGENCY [None]
  - PSYCHOLOGICAL FACTOR AFFECTING MEDICAL CONDITION [None]
  - SEDATION [None]
